FAERS Safety Report 9571389 (Version 2)
Quarter: 2013Q4

REPORT INFORMATION
  Report Type: Spontaneous
  Country: US (occurrence: US)
  Receive Date: 20131001
  Receipt Date: 20131002
  Transmission Date: 20140711
  Serious: No
  Sender: FDA-Public Use
  Company Number: US-TEVA-435003USA

PATIENT
  Sex: Female
  Weight: 70.37 kg

DRUGS (2)
  1. QNASL [Suspect]
     Indication: NASAL CONGESTION
  2. ALLEGRA [Concomitant]
     Indication: NASAL CONGESTION

REACTIONS (1)
  - Drug effect decreased [Not Recovered/Not Resolved]
